FAERS Safety Report 6945388-2 (Version None)
Quarter: 2010Q3

REPORT INFORMATION
  Report Type: 
  Country: None (occurrence: None)
  Receive Date: 20100827
  Receipt Date: 20100816
  Transmission Date: 20110219
  Serious: Yes (Other)
  Sender: FDA-Public Use
  Company Number: PHHY2009CA39746

PATIENT
  Sex: Male

DRUGS (7)
  1. SANDOSTATIN LAR [Suspect]
     Indication: NEUROENDOCRINE TUMOUR
     Dosage: 30 MG EVERY 4 WEEKS
     Route: 030
     Dates: start: 20090910
  2. SANDOSTATIN LAR [Suspect]
     Dosage: 40 MG, EVERY 4 WEEKS
     Route: 030
  3. INSULIN [Concomitant]
  4. FRAGMIN [Concomitant]
  5. PANTOPRAZOLE [Concomitant]
  6. MESALAZINE [Concomitant]
  7. ASPIRIN [Concomitant]
     Dosage: UNK

REACTIONS (13)
  - COUGH [None]
  - DECREASED APPETITE [None]
  - DIARRHOEA [None]
  - GASTRITIS [None]
  - HYPOPHAGIA [None]
  - INFECTION [None]
  - INJECTION SITE MASS [None]
  - INJECTION SITE PAIN [None]
  - NASOPHARYNGITIS [None]
  - NAUSEA [None]
  - OROPHARYNGEAL PAIN [None]
  - PURULENCE [None]
  - VOMITING [None]
